FAERS Safety Report 8682541 (Version 5)
Quarter: 2013Q3

REPORT INFORMATION
  Report Type: Spontaneous
  Country: US (occurrence: US)
  Receive Date: 20120725
  Receipt Date: 20130814
  Transmission Date: 20140515
  Serious: Yes (Hospitalization, Other)
  Sender: FDA-Public Use
  Company Number: US-MSD-1207USA004865

PATIENT
  Sex: Female

DRUGS (10)
  1. FOSAMAX [Suspect]
     Indication: OSTEOPOROSIS
     Dosage: 10 MG, UNK
     Route: 048
     Dates: start: 200009, end: 200010
  2. FOSAMAX [Suspect]
     Dosage: 70 MG, QW
     Route: 048
     Dates: start: 200010, end: 200805
  3. CALCIUM (UNSPECIFIED) [Concomitant]
     Dosage: 500 MG, BID
     Dates: start: 1980
  4. VITAMIN D (UNSPECIFIED) [Concomitant]
     Dosage: 125 IU, BID
     Dates: start: 1980
  5. VITAMINS (UNSPECIFIED) [Concomitant]
     Dosage: QD
     Dates: start: 1950
  6. HORMONES (UNSPECIFIED) [Concomitant]
     Dosage: UNK
     Dates: start: 1995, end: 2010
  7. ATIVAN [Concomitant]
     Indication: ANXIETY
     Dosage: UNK
     Dates: start: 1994
  8. LEVOTHYROXINE SODIUM [Concomitant]
     Indication: HYPOTHYROIDISM
     Dosage: UNK
     Dates: start: 1994, end: 2009
  9. BENTYL [Concomitant]
     Indication: IRRITABLE BOWEL SYNDROME
     Dosage: UNK
     Dates: start: 1994, end: 2003
  10. LEVOXYL [Concomitant]
     Indication: HYPOTHYROIDISM
     Dosage: UNK
     Dates: start: 1995, end: 2005

REACTIONS (38)
  - Open reduction of fracture [Unknown]
  - Fall [Unknown]
  - Open reduction of fracture [Unknown]
  - Pubis fracture [Recovering/Resolving]
  - Anaemia postoperative [Unknown]
  - Fall [Unknown]
  - Femur fracture [Unknown]
  - Transfusion [Unknown]
  - Cardiac failure congestive [Recovering/Resolving]
  - Cardiac pacemaker removal [Unknown]
  - Fall [Unknown]
  - Acute respiratory failure [Unknown]
  - Cardiac pacemaker insertion [Unknown]
  - Femur fracture [Recovered/Resolved]
  - Scoliosis [Unknown]
  - Atrial fibrillation [Not Recovered/Not Resolved]
  - Spinal osteoarthritis [Unknown]
  - Depression [Unknown]
  - Low turnover osteopathy [Unknown]
  - Coronary artery disease [Unknown]
  - Facial bones fracture [Unknown]
  - Fall [Unknown]
  - Staphylococcal sepsis [Unknown]
  - Skin lesion [Unknown]
  - Rhinorrhoea [Unknown]
  - Palpitations [Unknown]
  - Tooth extraction [Unknown]
  - Dental caries [Unknown]
  - Fractured sacrum [Unknown]
  - Osteoarthritis [Unknown]
  - Back disorder [Unknown]
  - Adverse event [Unknown]
  - Osteoarthritis [Unknown]
  - Vascular calcification [Unknown]
  - Fall [Unknown]
  - Dysarthria [Unknown]
  - Cardiac murmur [Unknown]
  - Musculoskeletal disorder [Unknown]
